FAERS Safety Report 12880733 (Version 3)
Quarter: 2016Q4

REPORT INFORMATION
  Report Type: Spontaneous
  Country: US (occurrence: US)
  Receive Date: 20161025
  Receipt Date: 20161117
  Transmission Date: 20170207
  Serious: No
  Sender: FDA-Public Use
  Company Number: US-GLAXOSMITHKLINE-US2016155658

PATIENT
  Sex: Male

DRUGS (2)
  1. VOLTAREN [Suspect]
     Active Substance: DICLOFENAC SODIUM
     Indication: PAIN
     Dosage: UNK
     Dates: start: 2015
  2. VOLTAREN [Suspect]
     Active Substance: DICLOFENAC SODIUM
     Dosage: UNK
     Dates: start: 201609

REACTIONS (5)
  - Drug administered at inappropriate site [Unknown]
  - Off label use [Unknown]
  - Inappropriate schedule of drug administration [Unknown]
  - Incorrect dose administered [Unknown]
  - Prescription drug used without a prescription [Unknown]

NARRATIVE: CASE EVENT DATE: 2015
